FAERS Safety Report 8966940 (Version 1)
Quarter: 2012Q4

REPORT INFORMATION
  Report Type: 
  Country: CA (occurrence: CA)
  Receive Date: 20121214
  Receipt Date: 20121214
  Transmission Date: 20130627
  Serious: Yes (Other)
  Sender: FDA-Public Use
  Company Number: CA-B.I. PHARMACEUTICALS,INC./RIDGEFIELD-2012-CN-02557CN

PATIENT
  Age: 68 Year
  Sex: Male

DRUGS (18)
  1. PRADAX [Suspect]
     Dosage: 300 mg
     Route: 048
  2. ADVAIR [Concomitant]
  3. ASA [Concomitant]
  4. CALCIUM CARBONATE [Concomitant]
  5. CEFUROXIME [Concomitant]
  6. CRESTOR [Concomitant]
  7. DOMPERIDONE [Concomitant]
  8. FUROSEMIDE [Concomitant]
  9. GLICLAZIDE MR [Concomitant]
  10. K-DUR [Concomitant]
  11. METFORMIN [Concomitant]
  12. PRAMIPEXOLE [Concomitant]
  13. RATIO-OXYCOCET [Concomitant]
  14. SPIRIVA [Concomitant]
  15. TAMSULOSIN [Concomitant]
  16. TOLOXIN [Concomitant]
  17. VENTOLIN [Concomitant]
  18. VITAMIN D [Concomitant]

REACTIONS (4)
  - Condition aggravated [Not Recovered/Not Resolved]
  - Ejaculation failure [Not Recovered/Not Resolved]
  - Erectile dysfunction [Not Recovered/Not Resolved]
  - Urinary tract disorder [Not Recovered/Not Resolved]
